FAERS Safety Report 10342358 (Version 1)
Quarter: 2014Q3

REPORT INFORMATION
  Report Type: Spontaneous
  Country: RS (occurrence: RS)
  Receive Date: 20140725
  Receipt Date: 20140725
  Transmission Date: 20150326
  Serious: Yes (Hospitalization, Other)
  Sender: FDA-Public Use
  Company Number: RS-PFIZER INC-2014206688

PATIENT
  Sex: Female

DRUGS (1)
  1. SUTENT [Suspect]
     Active Substance: SUNITINIB MALATE
     Indication: METASTATIC RENAL CELL CARCINOMA
     Route: 048

REACTIONS (9)
  - Renal cancer metastatic [Unknown]
  - Dehydration [Unknown]
  - Anaemia [Unknown]
  - Thrombocytopenia [Unknown]
  - Renal impairment [Unknown]
  - Hypothyroidism [Unknown]
  - Petechiae [Unknown]
  - Disease progression [Unknown]
  - Diarrhoea [Unknown]
